FAERS Safety Report 6727933-5 (Version None)
Quarter: 2010Q2

REPORT INFORMATION
  Report Type: 
  Country: None (occurrence: None)
  Receive Date: 20100512
  Receipt Date: 20100426
  Transmission Date: 20101027
  Serious: Yes (Hospitalization)
  Sender: FDA-Public Use
  Company Number: GP-10-04-0017

PATIENT
  Age: 48 Year
  Sex: Female

DRUGS (5)
  1. LITHIUM CARBONATE CAP [Suspect]
     Indication: BIPOLAR DISORDER
     Dosage: 300MG, T.I.D., P.O.
     Route: 048
     Dates: start: 20100405, end: 20100420
  2. HIGH BLOOD PRESSURE MEDICATION [Concomitant]
  3. HORMONE SUPPLEMENTS [Concomitant]
  4. ASPIRIN [Concomitant]
  5. PLAVIX [Concomitant]

REACTIONS (4)
  - DIZZINESS [None]
  - DRUG TOXICITY [None]
  - DYSARTHRIA [None]
  - TRANSIENT ISCHAEMIC ATTACK [None]
